FAERS Safety Report 18937175 (Version 2)
Quarter: 2021Q1

REPORT INFORMATION
  Report Type: Spontaneous
  Country: DE (occurrence: DE)
  Receive Date: 20210225
  Receipt Date: 20210302
  Transmission Date: 20210420
  Serious: Yes (Other)
  Sender: FDA-Public Use
  Company Number: DE-AUROBINDO-AUR-APL-2021-007700

PATIENT
  Sex: Female
  Weight: 60 kg

DRUGS (3)
  1. CANDESARTAN ZENTIVA [Suspect]
     Active Substance: CANDESARTAN CILEXETIL
     Indication: HYPERTENSION
     Dosage: 4 DOSAGE FORM, DAILY
     Route: 048
     Dates: start: 202006
  2. ACETYLSALICYLIC ACID TABLET [Suspect]
     Active Substance: ASPIRIN
     Indication: ANTICOAGULANT THERAPY
     Dosage: 2 DOSAGE FORM, DAILY
     Route: 048
     Dates: start: 202006
  3. BISOPROLOL FILM?COATED TABLETS [Suspect]
     Active Substance: BISOPROLOL
     Indication: PRODUCT USED FOR UNKNOWN INDICATION
     Dosage: 2 DOSAGE FORM, DAILY
     Route: 048
     Dates: start: 202006

REACTIONS (5)
  - Condition aggravated [Unknown]
  - Speech disorder [Unknown]
  - Muscle spasms [Not Recovered/Not Resolved]
  - Disturbance in attention [Not Recovered/Not Resolved]
  - Labile hypertension [Not Recovered/Not Resolved]

NARRATIVE: CASE EVENT DATE: 2020
